FAERS Safety Report 12304621 (Version 2)
Quarter: 2016Q2

REPORT INFORMATION
  Report Type: Report from Study
  Country: MX (occurrence: MX)
  Receive Date: 20160426
  Receipt Date: 20160526
  Transmission Date: 20160815
  Serious: Yes (Other)
  Sender: FDA-Public Use
  Company Number: PHHY2016MX054580

PATIENT
  Age: 72 Year
  Sex: Female

DRUGS (2)
  1. GELICART [Concomitant]
     Active Substance: DIETARY SUPPLEMENT
     Indication: PRODUCT USED FOR UNKNOWN INDICATION
     Dosage: 1 DF, QD (MID MORNING)
     Route: 065
  2. ACLASTA [Suspect]
     Active Substance: ZOLEDRONIC ACID
     Indication: BONE DISORDER
     Dosage: 1 DF (5 MG), Q12MO (ANUALLY)
     Route: 065

REACTIONS (13)
  - Hypoacusis [Not Recovered/Not Resolved]
  - Peripheral coldness [Recovering/Resolving]
  - Varicose vein [Not Recovered/Not Resolved]
  - Hypotension [Unknown]
  - Nerve compression [Unknown]
  - Mucosal inflammation [Not Recovered/Not Resolved]
  - Abasia [Unknown]
  - Spinal deformity [Unknown]
  - Embolism [Unknown]
  - Meniscus injury [Unknown]
  - Fall [Unknown]
  - Product use issue [Unknown]
  - Blood pressure increased [Unknown]

NARRATIVE: CASE EVENT DATE: 2013
